FAERS Safety Report 8418558 (Version 2)
Quarter: 2013Q1

REPORT INFORMATION
  Report Type: Spontaneous
  Country: AR (occurrence: None)
  Receive Date: 20120208
  Receipt Date: 20130111
  Transmission Date: 20140127
  Serious: Yes (Death, Life-Threatening, Hospitalization, Other)
  Sender: FDA-Public Use
  Company Number: 2012AR0049

PATIENT
  Age: 1 Year
  Sex: Female
  Weight: 10 kg

DRUGS (1)
  1. ORFADIN [Suspect]
     Indication: TYROSINAEMIA
     Dates: start: 20110701

REACTIONS (3)
  - Hepatic cancer [None]
  - Haemodynamic instability [None]
  - Cholestasis [None]
